FAERS Safety Report 5099033-4 (Version None)
Quarter: 2006Q3

REPORT INFORMATION
  Report Type: 
  Country: None (occurrence: None)
  Receive Date: 20060731
  Receipt Date: 20060505
  Transmission Date: 20061208
  Serious: No
  Sender: FDA-Public Use
  Company Number: 224763

PATIENT
  Age: 48 Year
  Sex: Female

DRUGS (5)
  1. HERCEPTIN [Suspect]
     Indication: BREAST CANCER
  2. PROTONIX [Concomitant]
  3. ZANTAC [Concomitant]
  4. TOPROL-XL [Concomitant]
  5. ELAVIL [Concomitant]

REACTIONS (1)
  - EJECTION FRACTION DECREASED [None]
